FAERS Safety Report 12626804 (Version 2)
Quarter: 2016Q3

REPORT INFORMATION
  Report Type: Spontaneous
  Country: US (occurrence: US)
  Receive Date: 20160805
  Receipt Date: 20160902
  Transmission Date: 20161109
  Serious: Yes (Life-Threatening, Hospitalization, Other)
  Sender: FDA-Public Use
  Company Number: US-GILEAD-2016-0226415

PATIENT
  Age: 63 Year
  Sex: Male
  Weight: 65.4 kg

DRUGS (1)
  1. COMPLERA [Suspect]
     Active Substance: EMTRICITABINE\RILPIVIRINE HYDROCHLORIDE\TENOFOVIR DISOPROXIL FUMARATE
     Indication: HIV INFECTION
     Dosage: UNK
     Route: 048
     Dates: start: 20151208, end: 20160729

REACTIONS (8)
  - HIV-associated neurocognitive disorder [Unknown]
  - Pneumonia [Unknown]
  - Respiratory failure [Recovered/Resolved]
  - Rhabdomyolysis [Unknown]
  - Sepsis [Unknown]
  - Hypotension [Unknown]
  - Hyponatraemia [Unknown]
  - Acute kidney injury [Unknown]

NARRATIVE: CASE EVENT DATE: 20160729
